FAERS Safety Report 19849227 (Version 3)
Quarter: 2021Q4

REPORT INFORMATION
  Report Type: Report from Study
  Country: US (occurrence: US)
  Receive Date: 20210917
  Receipt Date: 20211027
  Transmission Date: 20220303
  Serious: Yes (Death)
  Sender: FDA-Public Use
  Company Number: 2021A726992

PATIENT
  Age: 23167 Day
  Sex: Female
  Weight: 48.8 kg

DRUGS (4)
  1. BREZTRI [Suspect]
     Active Substance: BUDESONIDE\FORMOTEROL\GLYCOPYRROLATE
     Dosage: 2 PUFFS; 160-9-4.8 MCG/ACT AERO
     Route: 055
  2. LISINOPRIL [Suspect]
     Active Substance: LISINOPRIL
     Route: 048
  3. TAGRISSO [Suspect]
     Active Substance: OSIMERTINIB
     Indication: Non-small cell lung cancer
     Route: 048
     Dates: start: 202106, end: 20210910
  4. CRESTOR [Suspect]
     Active Substance: ROSUVASTATIN CALCIUM
     Dosage: 1 TABLET
     Route: 048

REACTIONS (2)
  - Malignant neoplasm progression [Fatal]
  - Rash [Unknown]

NARRATIVE: CASE EVENT DATE: 20100112
